FAERS Safety Report 7070541-X (Version None)
Quarter: 2010Q4

REPORT INFORMATION
  Report Type: 
  Country: None (occurrence: None)
  Receive Date: 20101027
  Receipt Date: 20101027
  Transmission Date: 20110411
  Serious: Yes (Life-Threatening, Hospitalization, Disabling)
  Sender: FDA-Public Use
  Company Number: None

PATIENT
  Age: 63 Year
  Sex: Female
  Weight: 53.5244 kg

DRUGS (2)
  1. FENTANYL [Suspect]
     Indication: BACK PAIN
     Dosage: 289.8 UG SIMPLE CONTINOUS INTRADISCAL (INTRASPINAL)
     Route: 024
     Dates: start: 20020227, end: 20070227
  2. BUPIVACAINE 5.0 MG/ML PUMP IMPLANT [Suspect]
     Dosage: 1,000 MG/DAY  2 YEARS 8 MOS
     Dates: start: 20070227, end: 20091026

REACTIONS (2)
  - DEVICE INFUSION ISSUE [None]
  - INCORRECT DOSE ADMINISTERED BY DEVICE [None]
